FAERS Safety Report 20431432 (Version 1)
Quarter: 2022Q1

REPORT INFORMATION
  Report Type: Report from Study
  Country: US (occurrence: US)
  Receive Date: 20220204
  Receipt Date: 20220204
  Transmission Date: 20220424
  Serious: Yes (Hospitalization)
  Sender: FDA-Public Use
  Company Number: None

PATIENT

DRUGS (6)
  1. ONCASPAR [Suspect]
     Active Substance: PEGASPARGASE
     Indication: Acute lymphocytic leukaemia
     Dosage: 3750 IU(2000IU/M2), D15-D34
     Route: 065
     Dates: start: 20190605, end: 20190605
  2. CYCLOPHOSPHAMIDE [Suspect]
     Active Substance: CYCLOPHOSPHAMIDE
     Indication: Acute lymphocytic leukaemia
     Dosage: 2800 MG(1000MG/M2), D1-D29
     Route: 042
     Dates: start: 20190521, end: 20190619
  3. CYTARABINE [Suspect]
     Active Substance: CYTARABINE
     Indication: Acute lymphocytic leukaemia
     Dosage: 1760(75 MG/M2), 8-11, 29-32, AND 36-39
     Route: 042
     Dates: start: 20190521, end: 20190628
  4. MERCAPTOPURINE [Suspect]
     Active Substance: MERCAPTOPURINE
     Indication: Acute lymphocytic leukaemia
     Dosage: 600 MG(60MG/M2), ON DAYS 1-14 AND 29-42
     Route: 048
     Dates: start: 20190521, end: 20190701
  5. VINCRISTINE SULFATE [Suspect]
     Active Substance: VINCRISTINE SULFATE
     Indication: Acute lymphocytic leukaemia
     Dosage: 4 MG(1.5MG/M2), 1XWEEK ON DAYS 12, 22, 43, 50
     Route: 042
     Dates: start: 20190605, end: 20190613
  6. METHOTREXATE [Suspect]
     Active Substance: METHOTREXATE
     Indication: Acute lymphocytic leukaemia
     Dosage: 15 MG, EVERY 1 WEEK, ON DAYS 1,8,15, AND 22.
     Route: 037
     Dates: start: 20190521, end: 20190613

REACTIONS (1)
  - Sepsis [Recovered/Resolved]

NARRATIVE: CASE EVENT DATE: 20190630
